FAERS Safety Report 9391274 (Version 2)
Quarter: 2013Q3

REPORT INFORMATION
  Report Type: Spontaneous
  Country: BR (occurrence: BR)
  Receive Date: 20130709
  Receipt Date: 20130801
  Transmission Date: 20140515
  Serious: Yes (Other)
  Sender: FDA-Public Use
  Company Number: PHHY2013BR071724

PATIENT
  Sex: Female
  Weight: 55 kg

DRUGS (8)
  1. SANDOSTATIN LAR [Suspect]
     Indication: ACROMEGALY
     Dosage: 30 MG, EVERY 28 DAYS
     Route: 030
     Dates: end: 201306
  2. SANDOSTATIN LAR [Suspect]
     Dosage: UNK UKN, UNK
     Dates: start: 201307
  3. SERTRALINE [Concomitant]
     Indication: DEPRESSION
     Dosage: 1 DF, IN THE MORNING
     Route: 048
  4. GABAPENTIN [Concomitant]
     Indication: DEPRESSION
     Dosage: 1 DF, IN THE MORNING
     Route: 048
  5. ALDAZIDA [Concomitant]
     Indication: DIURETIC THERAPY
     Dosage: 2 DF, (1 DF IN THE MORNING AND 1 DF AT NIGHT)
     Route: 048
     Dates: start: 2003
  6. FUROSEMIDE [Concomitant]
     Indication: DIURETIC THERAPY
     Dosage: 40 MG, DAILY
     Route: 048
     Dates: start: 2003
  7. DIAMICRON [Concomitant]
     Indication: DIABETES MELLITUS
     Dosage: 1.5 DF, (0.5 IN THE MORNING, 05 AT LUNCH AND 0.5 AT DINNER)
     Route: 048
  8. CLONAZEPAN [Concomitant]
     Indication: SLEEP DISORDER
     Dosage: 1 DF, AT NIGHT
     Route: 048

REACTIONS (12)
  - Fibromyalgia [Recovering/Resolving]
  - Muscle atrophy [Recovering/Resolving]
  - Haemorrhage [Recovered/Resolved]
  - Infection [Unknown]
  - Nodule [Recovering/Resolving]
  - Cardiac arrest [Recovered/Resolved]
  - Asthenia [Recovered/Resolved]
  - Lymphatic system neoplasm [Not Recovered/Not Resolved]
  - Brain neoplasm [Unknown]
  - Gallbladder neoplasm [Not Recovered/Not Resolved]
  - Pain [Recovered/Resolved]
  - Renal impairment [Recovering/Resolving]
